FAERS Safety Report 7783975-2 (Version None)
Quarter: 2011Q3

REPORT INFORMATION
  Report Type: 
  Country: None (occurrence: None)
  Receive Date: 20110928
  Receipt Date: 20110210
  Transmission Date: 20111222
  Serious: No
  Sender: FDA-Public Use
  Company Number: US-MYLANLABS-2011S1002886

PATIENT
  Sex: Female

DRUGS (1)
  1. FLUOXETINE HCL [Suspect]
     Indication: DEPRESSION
     Route: 048
     Dates: start: 20110201

REACTIONS (7)
  - DEPRESSION [None]
  - DECREASED APPETITE [None]
  - DIARRHOEA [None]
  - DRY MOUTH [None]
  - HEADACHE [None]
  - INSOMNIA [None]
  - NAUSEA [None]
